FAERS Safety Report 17165681 (Version 2)
Quarter: 2019Q4

REPORT INFORMATION
  Report Type: Spontaneous
  Country: US (occurrence: US)
  Receive Date: 20191217
  Receipt Date: 20191227
  Transmission Date: 20200122
  Serious: Yes (Hospitalization)
  Sender: FDA-Public Use
  Company Number: US-AKORN PHARMACEUTICALS-2019AKN02483

PATIENT
  Age: 16 Year
  Sex: Male
  Weight: 90.7 kg

DRUGS (3)
  1. MYORISAN [Suspect]
     Active Substance: ISOTRETINOIN
     Indication: ACNE CYSTIC
     Dosage: UNK
     Route: 048
     Dates: start: 20180125
  2. MYORISAN [Suspect]
     Active Substance: ISOTRETINOIN
     Dosage: 40 MG, 1X/DAY
     Route: 048
     Dates: start: 20190628, end: 20190729
  3. MYORISAN [Suspect]
     Active Substance: ISOTRETINOIN
     Dosage: ^8^ MG, 1X/DAY
     Route: 048
     Dates: start: 20190729, end: 20191115

REACTIONS (2)
  - Off label use [Recovered/Resolved]
  - Depression [Recovering/Resolving]

NARRATIVE: CASE EVENT DATE: 20190628
